FAERS Safety Report 25900566 (Version 1)
Quarter: 2025Q4

REPORT INFORMATION
  Report Type: Spontaneous
  Country: US (occurrence: None)
  Receive Date: 20251009
  Receipt Date: 20251009
  Transmission Date: 20260118
  Serious: Yes (Hospitalization)
  Sender: FDA-CTU
  Company Number: None

PATIENT
  Age: 54 Year
  Sex: Male
  Weight: 85.3 kg

DRUGS (2)
  1. XELODA [Suspect]
     Active Substance: CAPECITABINE
     Dates: end: 20250325
  2. ELOXATIN [Suspect]
     Active Substance: OXALIPLATIN
     Dates: end: 20250314

REACTIONS (5)
  - Urinary tract infection [None]
  - Catheter site infection [None]
  - Catheter site pain [None]
  - Gait disturbance [None]
  - Cystitis [None]

NARRATIVE: CASE EVENT DATE: 20250923
